FAERS Safety Report 8447248-7 (Version None)
Quarter: 2012Q2

REPORT INFORMATION
  Report Type: 
  Country: None (occurrence: None)
  Receive Date: 20120619
  Receipt Date: 20110603
  Transmission Date: 20120825
  Serious: No
  Sender: FDA-Public Use
  Company Number: US-PFIZER INC-K201100690

PATIENT
  Sex: Female

DRUGS (1)
  1. LEVOXYL [Suspect]
     Route: 048

REACTIONS (1)
  - GASTROINTESTINAL DISORDER [None]
